FAERS Safety Report 11265616 (Version 1)
Quarter: 2015Q3

REPORT INFORMATION
  Report Type: Report from Study
  Country: NL (occurrence: NL)
  Receive Date: 20150713
  Receipt Date: 20150713
  Transmission Date: 20151125
  Serious: Yes (Death)
  Sender: FDA-Public Use
  Company Number: NL-AMGEN-NLDSL2015061007

PATIENT
  Age: 65 Year
  Sex: Female

DRUGS (1)
  1. ARANESP [Suspect]
     Active Substance: DARBEPOETIN ALFA
     Indication: ANAEMIA
     Dosage: 1.0 ML (500 MCG), Q3WK
     Route: 058

REACTIONS (4)
  - Dyspnoea [Unknown]
  - Death [Fatal]
  - Cough [Unknown]
  - Blood disorder [Unknown]

NARRATIVE: CASE EVENT DATE: 201506
